FAERS Safety Report 6156158-X (Version None)
Quarter: 2009Q2

REPORT INFORMATION
  Report Type: 
  Country: None (occurrence: None)
  Receive Date: 20090415
  Receipt Date: 20090407
  Transmission Date: 20091009
  Serious: Yes (Hospitalization, Other)
  Sender: FDA-Public Use
  Company Number: PHBS2007ZA14792

PATIENT
  Age: 69 Year
  Sex: Male

DRUGS (8)
  1. STALEVO 100 [Suspect]
     Indication: PARKINSON'S DISEASE
     Dosage: ^LOWER DOSE^
     Route: 048
  2. STALEVO 100 [Suspect]
     Dosage: 150 MG, 5QD
     Route: 048
  3. STALEVO 100 [Suspect]
     Dosage: 1 DF, QD
  4. STALEVO 100 [Suspect]
     Dosage: 5 TABS/DAILY
  5. STALEVO 100 [Suspect]
     Dosage: 4 TABS/DAILY
  6. DRUG THERAPY NOS [Suspect]
  7. ZOLOFT [Concomitant]
  8. ASPIRIN [Concomitant]

REACTIONS (10)
  - AGGRESSION [None]
  - ANEURYSM REPAIR [None]
  - AORTIC ANEURYSM [None]
  - ERYTHEMA [None]
  - GAIT DISTURBANCE [None]
  - GENERAL PHYSICAL HEALTH DETERIORATION [None]
  - HALLUCINATION [None]
  - HYPERSOMNIA [None]
  - NOSOCOMIAL INFECTION [None]
  - SPEECH DISORDER [None]
